FAERS Safety Report 8345533-0 (Version None)
Quarter: 2012Q2

REPORT INFORMATION
  Report Type: 
  Country: None (occurrence: None)
  Receive Date: 20120508
  Receipt Date: 20120424
  Transmission Date: 20120825
  Serious: Yes (Other)
  Sender: FDA-Public Use
  Company Number: CHPA2012CA007321

PATIENT
  Age: 45 Year
  Sex: Female

DRUGS (3)
  1. EXCEDRIN (MIGRAINE) [Suspect]
     Indication: MIGRAINE
     Dosage: UNK, UNK
     Route: 048
  2. DRUG THERAPY NOS [Concomitant]
     Indication: MIGRAINE
  3. FIORINAL [Concomitant]
     Indication: MIGRAINE

REACTIONS (5)
  - PULSE ABNORMAL [None]
  - THERAPEUTIC RESPONSE UNEXPECTED [None]
  - BLOOD PRESSURE ABNORMAL [None]
  - CHEST PAIN [None]
  - HEADACHE [None]
